FAERS Safety Report 6244634-0 (Version None)
Quarter: 2009Q2

REPORT INFORMATION
  Report Type: 
  Country: None (occurrence: None)
  Receive Date: 20090625
  Receipt Date: 20090612
  Transmission Date: 20091009
  Serious: Yes (Other)
  Sender: FDA-Public Use
  Company Number: US-PFIZER INC-2009227292

PATIENT
  Sex: Female
  Weight: 120.65 kg

DRUGS (19)
  1. CHANTIX [Suspect]
     Indication: SMOKING CESSATION THERAPY
     Dosage: FREQUENCY: 2X/DAY, EVERY DAY;
     Dates: start: 20080601, end: 20080101
  2. VICODIN [Suspect]
     Indication: PAIN
     Dates: start: 20080101, end: 20080101
  3. LEVOTHYROXINE [Concomitant]
     Dosage: UNK
  4. VERAPAMIL [Concomitant]
     Dosage: UNK
  5. CYMBALTA [Concomitant]
     Dosage: UNK
  6. LASIX [Concomitant]
     Dosage: UNK
  7. TRIAMTERENE AND HYDROCHLOROTHIAZID ^HARRIS^ [Concomitant]
     Dosage: UNK
  8. ONE-A-DAY [Concomitant]
     Dosage: UNK
  9. LOVAZA [Concomitant]
     Dosage: UNK
  10. TYLENOL (CAPLET) [Concomitant]
     Indication: ARTHRITIS
     Dosage: UNK
  11. REQUIP [Concomitant]
     Indication: RESTLESS LEGS SYNDROME
  12. OMEPRAZOLE [Concomitant]
     Indication: GASTRIC DISORDER
  13. CALCIUM [Concomitant]
     Dosage: UNK
  14. FLONASE [Concomitant]
     Dosage: UNK
  15. POTASSIUM [Concomitant]
     Dosage: UNK
  16. COLACE [Concomitant]
     Dosage: UNK
  17. ACETYLSALICYLIC ACID [Concomitant]
     Dosage: UNK
  18. ALL OTHER THERAPEUTIC PRODUCTS [Concomitant]
     Indication: PANIC ATTACK
     Dosage: UNK
  19. TRAZODONE [Concomitant]
     Dosage: UNK

REACTIONS (2)
  - DEPRESSION [None]
  - NEGATIVE THOUGHTS [None]
